FAERS Safety Report 13997890 (Version 1)
Quarter: 2017Q3

REPORT INFORMATION
  Report Type: Report from Study
  Country: IL (occurrence: IL)
  Receive Date: 20170921
  Receipt Date: 20170921
  Transmission Date: 20171128
  Serious: Yes (Other)
  Sender: FDA-Public Use
  Company Number: IL-TAKEDA-2017TUS016459

PATIENT
  Age: 65 Year
  Sex: Female

DRUGS (4)
  1. VEDOLIZUMAB [Suspect]
     Active Substance: VEDOLIZUMAB
     Indication: CROHN^S DISEASE
     Dosage: 300 MG, UNK
     Route: 042
     Dates: start: 20150715
  2. LIPITOR [Concomitant]
     Active Substance: ATORVASTATIN CALCIUM
     Dosage: UNK UNK, QD
  3. LIVIAL [Concomitant]
     Active Substance: TIBOLONE
     Dosage: UNK
  4. ELTROXIN [Concomitant]
     Active Substance: LEVOTHYROXINE
     Indication: HYPOTHYROIDISM
     Dosage: UNK

REACTIONS (5)
  - Polyp [Not Recovered/Not Resolved]
  - Headache [Not Recovered/Not Resolved]
  - Rectal haemorrhage [Recovered/Resolved]
  - Inflammation [Not Recovered/Not Resolved]
  - Abdominal pain lower [Recovered/Resolved]

NARRATIVE: CASE EVENT DATE: 20170725
